FAERS Safety Report 17862125 (Version 2)
Quarter: 2020Q3

REPORT INFORMATION
  Report Type: Spontaneous
  Country: IT (occurrence: IT)
  Receive Date: 20200604
  Receipt Date: 20200911
  Transmission Date: 20201103
  Serious: Yes (Hospitalization, Other)
  Sender: FDA-Public Use
  Company Number: IT-INCYTE CORPORATION-2020IN004998

PATIENT

DRUGS (11)
  1. JAKAVI [Interacting]
     Active Substance: RUXOLITINIB
     Dosage: 5 MG, QD
     Route: 065
  2. JAKAVI [Interacting]
     Active Substance: RUXOLITINIB
     Dosage: 50 MG, QD
     Route: 065
  3. JAKAVI [Interacting]
     Active Substance: RUXOLITINIB
     Dosage: 5 MG, Q12H
     Route: 065
  4. ENOXAPARIN [Concomitant]
     Active Substance: ENOXAPARIN
     Indication: COVID-19
     Dosage: 6000 IU, BID
     Route: 065
  5. HYDROXYCHLOROQUINE [Concomitant]
     Active Substance: HYDROXYCHLOROQUINE
     Indication: COVID-19
     Dosage: 200 MG, BID
     Route: 065
  6. JAKAVI [Suspect]
     Active Substance: RUXOLITINIB
     Indication: COVID-19
     Dosage: 50 MG, BID
     Route: 065
  7. ACYCLOVIR [ACICLOVIR] [Suspect]
     Active Substance: ACYCLOVIR
     Indication: COVID-19
     Dosage: UNK
     Route: 065
  8. LEVOTHYROXINE. [Concomitant]
     Active Substance: LEVOTHYROXINE
     Indication: HYPOTHYROIDISM
     Dosage: UNK
     Route: 065
  9. OXYGEN. [Concomitant]
     Active Substance: OXYGEN
     Indication: COVID-19
     Dosage: UNK
     Route: 065
  10. JAKAVI [Interacting]
     Active Substance: RUXOLITINIB
     Dosage: 10 MG, Q12H (DOSE DOUBLED)
     Route: 065
  11. LOPINAVIR/RITONAVIR [Interacting]
     Active Substance: LOPINAVIR\RITONAVIR
     Indication: COVID-19
     Dosage: UNK (200 MG, 50 MG Q12H)
     Route: 065

REACTIONS (11)
  - Drug level increased [Unknown]
  - Purpura [Unknown]
  - Drug interaction [Unknown]
  - Rash [Unknown]
  - Haematocrit decreased [Unknown]
  - Haemoglobin decreased [Unknown]
  - Oral herpes [Unknown]
  - Skin lesion [Unknown]
  - Product use in unapproved indication [Unknown]
  - Dermatitis exfoliative generalised [Unknown]
  - Off label use [Unknown]
